FAERS Safety Report 4607367-X (Version None)
Quarter: 2005Q1

REPORT INFORMATION
  Report Type: 
  Country: None (occurrence: None)
  Receive Date: 20050310
  Receipt Date: 20050223
  Transmission Date: 20050727
  Serious: Yes (Hospitalization)
  Sender: FDA-Public Use
  Company Number: 2004IM000991

PATIENT
  Age: 65 Year
  Sex: Male

DRUGS (2)
  1. INFERAX (INTERFERON ALFACON-1) [Suspect]
     Indication: HEPATITIS C
     Dosage: 9 UG, QD, SUBCUTANEOUS
     Route: 058
     Dates: start: 20040324, end: 20041130
  2. RIBAVIRIN [Suspect]
     Indication: HEPATITIS C
     Dosage: 800 MG, QD, ORAL
     Route: 048

REACTIONS (7)
  - APHAGIA [None]
  - ASTHENIA [None]
  - CITROBACTER INFECTION [None]
  - CONCOMITANT DISEASE AGGRAVATED [None]
  - DISTURBANCE IN ATTENTION [None]
  - DYSSTASIA [None]
  - URINARY TRACT INFECTION [None]
